FAERS Safety Report 9102527 (Version 1)
Quarter: 2013Q1

REPORT INFORMATION
  Report Type: Spontaneous
  Country: AR (occurrence: AR)
  Receive Date: 20130219
  Receipt Date: 20130219
  Transmission Date: 20140127
  Serious: Yes (Other)
  Sender: FDA-Public Use
  Company Number: AR-TEVA-387196ISR

PATIENT
  Age: 35 Year
  Sex: Female

DRUGS (2)
  1. LAMIVUDINE W/ ZIDOVUDINE [Suspect]
     Dosage: 2 DOSAGE FORMS DAILY; TABLETS OR CAPSULES
     Route: 048
  2. EFAVIRENZ [Suspect]
     Dosage: 600 MILLIGRAM DAILY;
     Route: 048

REACTIONS (2)
  - Abortion spontaneous [Unknown]
  - Exposure during pregnancy [None]
